FAERS Safety Report 13884188 (Version 1)
Quarter: 2017Q3

REPORT INFORMATION
  Report Type: Spontaneous
  Country: US (occurrence: US)
  Receive Date: 20170821
  Receipt Date: 20170821
  Transmission Date: 20171127
  Serious: No
  Sender: FDA-Public Use
  Company Number: US-B.I. PHARMACEUTICALS,INC./RIDGEFIELD-2017-BI-045147

PATIENT
  Age: 83 Year
  Sex: Female

DRUGS (4)
  1. PROAIR HFA [Concomitant]
     Active Substance: ALBUTEROL SULFATE
     Indication: CHRONIC OBSTRUCTIVE PULMONARY DISEASE
     Dosage: PRN;  FORMULATION: INHALATION AEROSOL;
     Route: 055
     Dates: start: 2016
  2. SPIRIVA [Suspect]
     Active Substance: TIOTROPIUM BROMIDE MONOHYDRATE
     Indication: CHRONIC OBSTRUCTIVE PULMONARY DISEASE
     Dosage: 1 CAPSULE 1 TIME DIALY;  FORM STRENGTH: 18 MCG; FORMULATION: CAPSULE? ADMINISTRATION CORRECT? YES ?A
     Route: 055
     Dates: start: 2015
  3. ADVAIR HFA [Concomitant]
     Active Substance: FLUTICASONE PROPIONATE\SALMETEROL XINAFOATE
     Indication: CHRONIC OBSTRUCTIVE PULMONARY DISEASE
     Dosage: 1 INHALATION BID;  FORMULATION: INHALATION AEROSOL;
     Route: 055
     Dates: start: 2015
  4. AFRIN [Concomitant]
     Active Substance: OXYMETAZOLINE
     Indication: HYPERSENSITIVITY
     Dosage: 1 SPRAY EACH NOSTRIL 1 TIME DAILY;  FORMULATION: NASAL SPRAY;
     Route: 045
     Dates: start: 2017

REACTIONS (1)
  - Dyspnoea [Recovered/Resolved]

NARRATIVE: CASE EVENT DATE: 201708
